FAERS Safety Report 17718018 (Version 1)
Quarter: 2020Q2

REPORT INFORMATION
  Report Type: Spontaneous
  Country: US (occurrence: US)
  Receive Date: 20200428
  Receipt Date: 20200428
  Transmission Date: 20200714
  Serious: No
  Sender: FDA-Public Use
  Company Number: None

PATIENT
  Sex: Male

DRUGS (1)
  1. FARYDAK [Suspect]
     Active Substance: PANOBINOSTAT
     Dosage: ?          OTHER FREQUENCY:DAY 1,3,5,15,17;?
     Route: 048
     Dates: start: 20191117

REACTIONS (3)
  - Surgery [None]
  - Therapy interrupted [None]
  - Disease progression [None]
